FAERS Safety Report 9496451 (Version 3)
Quarter: 2013Q4

REPORT INFORMATION
  Report Type: Report from Study
  Country: CO (occurrence: CO)
  Receive Date: 20130904
  Receipt Date: 20131106
  Transmission Date: 20140711
  Serious: Yes (Hospitalization)
  Sender: FDA-Public Use
  Company Number: PHHY2013CO095278

PATIENT
  Age: 1 Year
  Sex: Male
  Weight: 14 kg

DRUGS (3)
  1. EVEROLIMUS [Suspect]
     Dosage: UNK UKN, UNK
  2. VIGABATRIN [Concomitant]
     Indication: EPILEPSY
     Dosage: 500 MG, UNK
     Dates: start: 20120315
  3. VALPROIC ACID [Concomitant]
     Indication: EPILEPSY
     Dosage: 250 MG, UNK
     Dates: start: 20130715

REACTIONS (5)
  - Somnolence [Recovering/Resolving]
  - Nervous system disorder [Recovering/Resolving]
  - Nausea [Recovered/Resolved]
  - Vomiting [Recovered/Resolved]
  - Dehydration [Recovering/Resolving]
